FAERS Safety Report 13197403 (Version 4)
Quarter: 2017Q4

REPORT INFORMATION
  Report Type: Report from Study
  Country: US (occurrence: US)
  Receive Date: 20170208
  Receipt Date: 20171115
  Transmission Date: 20180320
  Serious: Yes (Other)
  Sender: FDA-Public Use
  Company Number: US-ALEXION-A201701175

PATIENT
  Age: 45 Year
  Sex: Female

DRUGS (2)
  1. SOLIRIS [Suspect]
     Active Substance: ECULIZUMAB
     Indication: ATYPICAL HAEMOLYTIC URAEMIC SYNDROME
     Dosage: 1200 MG, EVERY 14 DAYS
     Route: 042
     Dates: start: 20131028, end: 20171012
  2. SOLIRIS [Suspect]
     Active Substance: ECULIZUMAB
     Indication: PAROXYSMAL NOCTURNAL HAEMOGLOBINURIA
     Dosage: 900 MG, Q2W
     Route: 042
     Dates: start: 20131028, end: 20170330

REACTIONS (10)
  - Toothache [Not Recovered/Not Resolved]
  - Neck pain [Unknown]
  - Swelling [Unknown]
  - Mouth swelling [Recovering/Resolving]
  - Pyrexia [Not Recovered/Not Resolved]
  - Gingival abscess [Not Recovered/Not Resolved]
  - Full blood count decreased [Unknown]
  - Headache [Unknown]
  - Oral pain [Recovering/Resolving]
  - Ear discomfort [Unknown]

NARRATIVE: CASE EVENT DATE: 201701
